FAERS Safety Report 20239499 (Version 1)
Quarter: 2021Q4

REPORT INFORMATION
  Report Type: Spontaneous
  Country: US (occurrence: US)
  Receive Date: 20211228
  Receipt Date: 20211228
  Transmission Date: 20220303
  Serious: Yes (Other)
  Sender: FDA-Public Use
  Company Number: US-PURDUE-USA-2020-0198166

PATIENT
  Sex: Male

DRUGS (10)
  1. OXYCONTIN [Suspect]
     Active Substance: OXYCODONE HYDROCHLORIDE
     Indication: Neck pain
     Dosage: UNK
     Route: 048
     Dates: start: 201011
  2. OXYCONTIN [Suspect]
     Active Substance: OXYCODONE HYDROCHLORIDE
     Indication: Back pain
     Dosage: 1 DF, DAILY
     Route: 048
  3. MS CONTIN [Suspect]
     Active Substance: MORPHINE SULFATE
     Indication: Neck pain
     Dosage: UNK
     Route: 048
     Dates: start: 201011
  4. MS CONTIN [Suspect]
     Active Substance: MORPHINE SULFATE
     Indication: Back pain
  5. HYDROCODONE BITARTRATE AND ACETAMINOPHEN [Suspect]
     Active Substance: ACETAMINOPHEN\HYDROCODONE BITARTRATE
     Indication: Neck pain
     Dosage: UNK
     Route: 048
  6. HYDROCODONE BITARTRATE AND ACETAMINOPHEN [Suspect]
     Active Substance: ACETAMINOPHEN\HYDROCODONE BITARTRATE
     Indication: Back pain
  7. ACETAMINOPHEN\OXYCODONE HYDROCHLORIDE [Suspect]
     Active Substance: ACETAMINOPHEN\OXYCODONE HYDROCHLORIDE
     Indication: Neck pain
     Dosage: UNK
     Route: 048
  8. ACETAMINOPHEN\OXYCODONE HYDROCHLORIDE [Suspect]
     Active Substance: ACETAMINOPHEN\OXYCODONE HYDROCHLORIDE
     Indication: Back pain
  9. BUPRENORPHINE [Suspect]
     Active Substance: BUPRENORPHINE
     Indication: Neck pain
     Dosage: UNK
     Route: 048
  10. BUPRENORPHINE [Suspect]
     Active Substance: BUPRENORPHINE
     Indication: Back pain

REACTIONS (13)
  - Drug dependence [Unknown]
  - Pain [Unknown]
  - Emotional distress [Unknown]
  - Drug tolerance [Unknown]
  - Product prescribing error [Unknown]
  - General physical health deterioration [Unknown]
  - Dental caries [Unknown]
  - Tooth loss [Unknown]
  - Withdrawal syndrome [Unknown]
  - Anxiety [Unknown]
  - Hypoaesthesia [Unknown]
  - Road traffic accident [Unknown]
  - Restless legs syndrome [Unknown]
